FAERS Safety Report 7900903 (Version 4)
Quarter: 2013Q2

REPORT INFORMATION
  Report Type: Spontaneous
  Country: JP (occurrence: JP)
  Receive Date: 20110415
  Receipt Date: 20130613
  Transmission Date: 20140414
  Serious: Yes (Death, Other)
  Sender: FDA-Public Use
  Company Number: JP-ROCHE-713139

PATIENT
  Age: 5 Year
  Sex: Female

DRUGS (3)
  1. AVASTIN [Suspect]
     Indication: BRAIN STEM GLIOMA
     Route: 041
     Dates: start: 20091104, end: 20100407
  2. AVASTIN [Suspect]
     Indication: OFF LABEL USE
  3. IRINOTECAN HYDROCHLORIDE [Concomitant]
     Indication: BRAIN STEM GLIOMA
     Dosage: DOSAGE IS UNCERTAIN
     Route: 041

REACTIONS (7)
  - Disease progression [Fatal]
  - Tumour haemorrhage [Unknown]
  - Alopecia [Recovering/Resolving]
  - Gingival bleeding [Recovering/Resolving]
  - Lymphocyte count decreased [Not Recovered/Not Resolved]
  - Epistaxis [Unknown]
  - Gingival bleeding [Unknown]
